FAERS Safety Report 7108826-0 (Version None)
Quarter: 2010Q4

REPORT INFORMATION
  Report Type: 
  Country: None (occurrence: None)
  Receive Date: 20101112
  Receipt Date: 20101101
  Transmission Date: 20110411
  Serious: Yes (Death, Life-Threatening, Hospitalization)
  Sender: FDA-Public Use
  Company Number: AUR-APL-2010-02148

PATIENT
  Age: 70 Year

DRUGS (6)
  1. SIMVASTATIN [Suspect]
     Indication: HYPERCHOLESTEROLAEMIA
     Dosage: 40MG-ORAL
     Route: 048
  2. ERYTHROMYCIN [Suspect]
     Indication: LOWER RESPIRATORY TRACT INFECTION
     Dosage: 250 MG-QID-ORAL
     Route: 048
  3. FLUCLOXACILLIN [Suspect]
     Indication: PSOAS ABSCESS
     Dosage: 500MG-QID-ORAL
     Route: 048
  4. CEFUROXIME [Concomitant]
  5. METRONIDAZOLE [Concomitant]
  6. CLARITHROMYCIN [Concomitant]

REACTIONS (8)
  - ANURIA [None]
  - BLOOD URINE PRESENT [None]
  - DEVICE RELATED SEPSIS [None]
  - DRUG INTERACTION [None]
  - DYSPNOEA [None]
  - HAEMODIALYSIS [None]
  - RHABDOMYOLYSIS [None]
  - UNRESPONSIVE TO STIMULI [None]
